FAERS Safety Report 4382259-2 (Version None)
Quarter: 2004Q2

REPORT INFORMATION
  Report Type: 
  Country: None (occurrence: None)
  Receive Date: 20040616
  Receipt Date: 20040602
  Transmission Date: 20050107
  Serious: No
  Sender: FDA-Public Use
  Company Number: A01200402585

PATIENT
  Age: 78 Year

DRUGS (5)
  1. (ZOLPIDEM)  - TABLET - 10 MG [Suspect]
     Indication: INITIAL INSOMNIA
     Dosage: 10 MG ONCE
     Route: 048
     Dates: start: 20040512, end: 20040512
  2. FERROMIA (FERROUS CITRATE) [Concomitant]
  3. NORVASC [Concomitant]
  4. LOXONIN (LOXOPROFEN SODIUM) [Concomitant]
  5. MARZULENE (AZULENE SULFONATE SODIUM L-GLUTAMINE) [Concomitant]

REACTIONS (2)
  - DELIRIUM [None]
  - HIP ARTHROPLASTY [None]
